FAERS Safety Report 10396930 (Version 3)
Quarter: 2018Q2

REPORT INFORMATION
  Report Type: Report from Study
  Country: MX (occurrence: MX)
  Receive Date: 20140820
  Receipt Date: 20180430
  Transmission Date: 20180711
  Serious: Yes (Other)
  Sender: FDA-Public Use
  Company Number: PHHY2013MX132075

PATIENT
  Age: 84 Year
  Sex: Female

DRUGS (6)
  1. NIMOTOP [Concomitant]
     Active Substance: NIMODIPINE
     Indication: CARDIOVASCULAR DISORDER
     Dosage: 1 DF, QD
     Route: 065
     Dates: start: 2015
  2. CO-DIOVAN [Suspect]
     Active Substance: HYDROCHLOROTHIAZIDE\VALSARTAN
     Indication: HYPERTENSION
     Dosage: 1 DF (25 MG HYDROCHLOROTHIAZIDE/160MG VALSARTAN), QD
     Route: 048
     Dates: start: 2010
  3. CO-DIOVAN [Suspect]
     Active Substance: HYDROCHLOROTHIAZIDE\VALSARTAN
     Dosage: 2 DF (25 MG HYDROCHLOROTHIAZIDE/160MG VALSARTAN), QD
     Route: 048
  4. CO-DIOVAN [Suspect]
     Active Substance: HYDROCHLOROTHIAZIDE\VALSARTAN
     Dosage: 2 DF, QD (12.5 MG HYDROCHLOROTHIAZIDE/160MG VALSARTAN)
     Route: 048
  5. SERMION [Concomitant]
     Active Substance: NICERGOLINE
     Indication: PRODUCT USED FOR UNKNOWN INDICATION
     Dosage: UNK
     Route: 065
  6. CLAUTER [Concomitant]
     Indication: CARDIOVASCULAR DISORDER
     Dosage: 2 DF, QD
     Route: 065
     Dates: start: 2015

REACTIONS (11)
  - Oxygen saturation abnormal [Not Recovered/Not Resolved]
  - Visual impairment [Recovering/Resolving]
  - Head injury [Unknown]
  - Vomiting [Not Recovered/Not Resolved]
  - Inappropriate schedule of drug administration [Unknown]
  - Venous occlusion [Not Recovered/Not Resolved]
  - Gait inability [Unknown]
  - Vertigo [Not Recovered/Not Resolved]
  - Dizziness [Not Recovered/Not Resolved]
  - Cardiac disorder [Not Recovered/Not Resolved]
  - Fall [Unknown]

NARRATIVE: CASE EVENT DATE: 2013
